FAERS Safety Report 24628969 (Version 1)
Quarter: 2024Q4

REPORT INFORMATION
  Report Type: Spontaneous
  Country: FR (occurrence: FR)
  Receive Date: 20241118
  Receipt Date: 20241118
  Transmission Date: 20250115
  Serious: Yes (Other)
  Sender: AUROBINDO
  Company Number: FR-AFSSAPS-NT20201388

PATIENT
  Age: 39 Year
  Sex: Male
  Weight: 73 kg

DRUGS (3)
  1. NEVIRAPINE [Suspect]
     Active Substance: NEVIRAPINE
     Indication: HIV infection
     Dosage: 400 MILLIGRAM
     Route: 048
     Dates: start: 20051025, end: 20200615
  2. TENOFOVIR DISOPROXIL [Suspect]
     Active Substance: TENOFOVIR DISOPROXIL
     Indication: HIV infection
     Dosage: 245 MILLIGRAM
     Route: 048
     Dates: start: 20120723, end: 20200615
  3. EMTRICITABINE [Suspect]
     Active Substance: EMTRICITABINE
     Indication: HIV infection
     Dosage: 200 MILLIGRAM
     Route: 048
     Dates: start: 20120723, end: 20200615

REACTIONS (1)
  - Renal impairment [Not Recovered/Not Resolved]

NARRATIVE: CASE EVENT DATE: 20120813
